FAERS Safety Report 13830374 (Version 1)
Quarter: 2017Q3

REPORT INFORMATION
  Report Type: Spontaneous
  Country: US (occurrence: US)
  Receive Date: 20170803
  Receipt Date: 20170803
  Transmission Date: 20171127
  Serious: No
  Sender: FDA-Public Use
  Company Number: US-SA-2017SA080466

PATIENT
  Sex: Female

DRUGS (5)
  1. METOPROLOL. [Concomitant]
     Active Substance: METOPROLOL
     Dosage: ER
  2. CILOSTAZOL. [Concomitant]
     Active Substance: CILOSTAZOL
  3. PREDNISONE. [Concomitant]
     Active Substance: PREDNISONE
  4. PRALUENT [Suspect]
     Active Substance: ALIROCUMAB
     Indication: HYPERLIPIDAEMIA
     Route: 058
     Dates: start: 20170406
  5. ALIROCUMAB PREFILLED PEN [Concomitant]
     Active Substance: ALIROCUMAB
     Indication: HYPERLIPIDAEMIA
     Dates: start: 20170406

REACTIONS (3)
  - Diarrhoea [Not Recovered/Not Resolved]
  - Abdominal pain [Unknown]
  - Injection site pain [Not Recovered/Not Resolved]
